FAERS Safety Report 17214193 (Version 2)
Quarter: 2022Q2

REPORT INFORMATION
  Report Type: Spontaneous
  Country: US (occurrence: US)
  Receive Date: 20191230
  Receipt Date: 20220516
  Transmission Date: 20220721
  Serious: No
  Sender: FDA-Public Use
  Company Number: US-PFIZER INC-2019464853

PATIENT
  Age: 75 Year
  Sex: Female

DRUGS (12)
  1. TIKOSYN [Suspect]
     Active Substance: DOFETILIDE
     Indication: Atrial fibrillation
     Dosage: 0.5 MG, 2X/DAY (ONE AT 8 O^ CLOCK IN THE MORNING ONE AT 8 O^ CLOCK AT NIGHT)
     Route: 048
     Dates: start: 201810
  2. TIKOSYN [Suspect]
     Active Substance: DOFETILIDE
     Dosage: 10 MG, 2X/DAY
     Dates: start: 20181030
  3. LOSARTAN [Concomitant]
     Active Substance: LOSARTAN
     Dosage: 50 MG, UNK
     Dates: start: 201605
  4. ATORVASTATIN [Concomitant]
     Active Substance: ATORVASTATIN
     Indication: Blood cholesterol increased
     Dosage: 40 MG, UNK
  5. LATANOPROST [Concomitant]
     Active Substance: LATANOPROST
     Dosage: 2 GTT, UNK (0.05 AND I TAKE ONE DROP IN EACH EYE IN THE EVENING)
     Route: 047
     Dates: start: 201810
  6. TIMOLOL MALEATE [Concomitant]
     Active Substance: TIMOLOL MALEATE
     Dosage: 2 GTT, 1X/DAY, 0.5 MG, IN THE MORNING
     Route: 047
     Dates: start: 199910
  7. PRADAXA [Concomitant]
     Active Substance: DABIGATRAN ETEXILATE MESYLATE
     Dosage: UNK
     Dates: start: 201904
  8. FAMOTIDINE [Concomitant]
     Active Substance: FAMOTIDINE
     Dosage: UNK
  9. MAGNESIUM [Concomitant]
     Active Substance: MAGNESIUM
     Dosage: UNK
     Dates: start: 201810
  10. LORATADINE [Concomitant]
     Active Substance: LORATADINE
     Dosage: UNK
  11. COENZYME Q10 [Concomitant]
     Active Substance: DIETARY SUPPLEMENT\UBIDECARENONE
     Dosage: UNK
  12. XARELTO [Concomitant]
     Active Substance: RIVAROXABAN
     Dosage: UNK
     Dates: start: 2017, end: 2019

REACTIONS (1)
  - Heart rate abnormal [Unknown]

NARRATIVE: CASE EVENT DATE: 20190201
